FAERS Safety Report 15673484 (Version 3)
Quarter: 2020Q3

REPORT INFORMATION
  Report Type: Report from Study
  Country: US (occurrence: US)
  Receive Date: 20181129
  Receipt Date: 20200701
  Transmission Date: 20201102
  Serious: Yes (Hospitalization, Other)
  Sender: FDA-Public Use
  Company Number: US-ACTELION-A-NJ2016-136157

PATIENT
  Sex: Female
  Weight: 78.46 kg

DRUGS (8)
  1. WARFARIN [Concomitant]
     Active Substance: WARFARIN
  2. VELETRI [Suspect]
     Active Substance: EPOPROSTENOL
     Indication: PULMONARY ARTERIAL HYPERTENSION
     Dosage: 40 NG/KG, PER MIN
     Route: 042
     Dates: start: 20121112
  3. VELETRI [Suspect]
     Active Substance: EPOPROSTENOL
     Dosage: 41 NG
     Route: 042
  4. SILDENAFIL. [Concomitant]
     Active Substance: SILDENAFIL
  5. VELETRI [Suspect]
     Active Substance: EPOPROSTENOL
     Dosage: 43 NG/KG, PER MIN
     Route: 042
  6. VELETRI [Suspect]
     Active Substance: EPOPROSTENOL
     Dosage: 41 NG/KG, PER MIN
     Route: 042
  7. OPSUMIT [Suspect]
     Active Substance: MACITENTAN
     Indication: PULMONARY ARTERIAL HYPERTENSION
     Dosage: 10 MG, QD
     Route: 048
  8. VELETRI [Suspect]
     Active Substance: EPOPROSTENOL
     Dosage: 44 NG/KG, PER MIN
     Route: 042

REACTIONS (29)
  - Palpitations [Unknown]
  - Condition aggravated [Unknown]
  - Pulmonary arterial hypertension [Unknown]
  - Catheter site erythema [Unknown]
  - Fluid retention [Unknown]
  - Pain in jaw [Unknown]
  - Diarrhoea [Unknown]
  - Product dose omission issue [Unknown]
  - Oedema [Unknown]
  - Lower respiratory tract infection [Unknown]
  - Fluid overload [Unknown]
  - Pain in extremity [Unknown]
  - Flushing [Unknown]
  - Dyspnoea [Unknown]
  - Headache [Unknown]
  - Frustration tolerance decreased [Unknown]
  - Device issue [Unknown]
  - Syncope [Unknown]
  - Chest pain [Unknown]
  - Bone pain [Unknown]
  - Cardiac ventricular disorder [Unknown]
  - Dyspnoea exertional [Unknown]
  - Lung transplant [Unknown]
  - Pain [Unknown]
  - Burning sensation [Unknown]
  - Catheter site pruritus [Unknown]
  - Device infusion issue [Unknown]
  - Device failure [Unknown]
  - Cough [Unknown]
